FAERS Safety Report 11889608 (Version 2)
Quarter: 2016Q1

REPORT INFORMATION
  Report Type: Spontaneous
  Country: US (occurrence: US)
  Receive Date: 20160105
  Receipt Date: 20160216
  Transmission Date: 20160526
  Serious: Yes (Other)
  Sender: FDA-Public Use
  Company Number: US-PFIZER INC-2015468773

PATIENT
  Age: 74 Year
  Sex: Female

DRUGS (2)
  1. EXEMESTANE. [Suspect]
     Active Substance: EXEMESTANE
     Indication: BREAST CANCER METASTATIC
     Dosage: UNK
  2. AFINITOR [Suspect]
     Active Substance: EVEROLIMUS
     Indication: BREAST CANCER METASTATIC
     Dosage: UNK

REACTIONS (9)
  - Malaise [Unknown]
  - Abdominal discomfort [Unknown]
  - Diarrhoea [Unknown]
  - Cataract [Unknown]
  - Osteoarthritis [Unknown]
  - Nausea [Recovering/Resolving]
  - Musculoskeletal discomfort [Recovering/Resolving]
  - Asthenia [Recovering/Resolving]
  - Tumour marker increased [Unknown]
